FAERS Safety Report 9909593 (Version 2)
Quarter: 2014Q1

REPORT INFORMATION
  Report Type: Spontaneous
  Country: US (occurrence: US)
  Receive Date: 20140219
  Receipt Date: 20140219
  Transmission Date: 20141002
  Serious: Yes (Hospitalization)
  Sender: FDA-Public Use
  Company Number: US-GLAXOSMITHKLINE-A0810650A

PATIENT
  Age: 70 Year
  Sex: Female
  Weight: 89.5 kg

DRUGS (9)
  1. AVANDIA [Suspect]
     Indication: DIABETES MELLITUS
     Route: 048
     Dates: start: 19990825, end: 200609
  2. AVANDAMET [Suspect]
     Indication: DIABETES MELLITUS
     Route: 048
  3. GLUCOTROL [Concomitant]
  4. GLUCOPHAGE [Concomitant]
  5. LEVOXYL [Concomitant]
  6. ATENOLOL [Concomitant]
  7. DYAZIDE [Concomitant]
  8. FOSAMAX [Concomitant]
  9. VYTORIN [Concomitant]

REACTIONS (5)
  - Myocardial infarction [Not Recovered/Not Resolved]
  - Cardiac failure congestive [Unknown]
  - Depression [Unknown]
  - Cardiac disorder [Unknown]
  - Acute coronary syndrome [Unknown]
